FAERS Safety Report 9689785 (Version 2)
Quarter: 2014Q1

REPORT INFORMATION
  Report Type: Report from Study
  Country: KR (occurrence: KR)
  Receive Date: 20131115
  Receipt Date: 20140225
  Transmission Date: 20141002
  Serious: Yes (Hospitalization)
  Sender: FDA-Public Use
  Company Number: KR-JNJFOC-20131105678

PATIENT
  Age: 16 Year
  Sex: Female
  Weight: 58.5 kg

DRUGS (6)
  1. REMICADE [Suspect]
     Indication: CROHN^S DISEASE
     Dosage: FREQ 1
     Route: 042
     Dates: start: 20130410, end: 20130906
  2. REMICADE [Suspect]
     Indication: CROHN^S DISEASE
     Dosage: FREQ 1
     Route: 042
     Dates: start: 20130227, end: 20130313
  3. NISOLONE [Concomitant]
     Indication: CROHN^S DISEASE
     Dosage: FREQ 3
     Route: 048
     Dates: start: 20120724, end: 20120822
  4. SALAZOPYRIN [Concomitant]
     Indication: CROHN^S DISEASE
     Dosage: FREQ 3
     Route: 048
     Dates: start: 20120724, end: 20130311
  5. AZAFRINE [Concomitant]
     Indication: CROHN^S DISEASE
     Dosage: FREQ 1
     Route: 048
     Dates: start: 20130313, end: 20130409
  6. AZAFRINE [Concomitant]
     Indication: CROHN^S DISEASE
     Route: 048
     Dates: start: 20130410

REACTIONS (1)
  - Haematochezia [Recovered/Resolved]
